FAERS Safety Report 8862957 (Version 2)
Quarter: 2012Q4

REPORT INFORMATION
  Report Type: 
  Country: JP (occurrence: JP)
  Receive Date: 20121026
  Receipt Date: 20121121
  Transmission Date: 20130627
  Serious: Yes (Hospitalization)
  Sender: FDA-Public Use
  Company Number: JP-B.I. PHARMACEUTICALS,INC./RIDGEFIELD-2012-BP-26525NB

PATIENT
  Age: 90 Year
  Sex: Female

DRUGS (1)
  1. MIRAPEX [Suspect]
     Dosage: 1.5 mg
     Route: 048
     Dates: start: 20120926, end: 20121023

REACTIONS (2)
  - Femoral neck fracture [Unknown]
  - Fall [Unknown]
